FAERS Safety Report 8181366-6 (Version None)
Quarter: 2012Q1

REPORT INFORMATION
  Report Type: 
  Country: None (occurrence: None)
  Receive Date: 20120302
  Receipt Date: 20120228
  Transmission Date: 20120608
  Serious: No
  Sender: FDA-Public Use
  Company Number: US-PFIZER INC-2011067072

PATIENT
  Sex: Female
  Weight: 83.9 kg

DRUGS (8)
  1. VELCADE [Suspect]
     Dosage: UNK
     Dates: start: 20110210, end: 20110303
  2. VELCADE [Suspect]
     Dosage: UNK
     Dates: start: 20110308
  3. SONATA [Suspect]
     Dosage: UNK
     Route: 048
     Dates: start: 20110308, end: 20110308
  4. SONATA [Suspect]
     Dosage: UNK
     Route: 048
     Dates: start: 20110303, end: 20110303
  5. VELCADE [Suspect]
     Indication: MULTIPLE MYELOMA
     Dosage: UNK
     Dates: start: 20080101, end: 20080101
  6. DECADRON [Concomitant]
     Dosage: UNK
     Dates: start: 20110308, end: 20110308
  7. SONATA [Suspect]
     Dosage: UNK
     Dates: start: 20110303, end: 20110308
  8. DECADRON [Concomitant]
     Dosage: UNK
     Dates: start: 20110303, end: 20110308

REACTIONS (4)
  - ERYTHEMA [None]
  - URTICARIA [None]
  - PRURITUS [None]
  - PALLOR [None]
